FAERS Safety Report 10636030 (Version 1)
Quarter: 2014Q4

REPORT INFORMATION
  Report Type: Spontaneous
  Country: CN (occurrence: CN)
  Receive Date: 20141205
  Receipt Date: 20141205
  Transmission Date: 20150529
  Serious: Yes (Other)
  Sender: FDA-Public Use
  Company Number: CN-BAYER-2014-175756

PATIENT

DRUGS (1)
  1. BAYASPIRIN [Suspect]
     Active Substance: ASPIRIN
     Dosage: 1-2 HOURS AFTER MEAL EVERYDAY

REACTIONS (6)
  - Oesophageal dilatation [None]
  - Wrong technique in drug usage process [None]
  - Abdominal pain upper [None]
  - Hiccups [None]
  - Nausea [None]
  - Gastrooesophageal reflux disease [None]
